FAERS Safety Report 25920797 (Version 1)
Quarter: 2025Q4

REPORT INFORMATION
  Report Type: Other
  Country: US (occurrence: US)
  Receive Date: 20251014
  Receipt Date: 20251014
  Transmission Date: 20260118
  Serious: Yes (Hospitalization)
  Sender: VITRUVIAS THERAPEUTICS
  Company Number: US-Vitruvias Therapeutics-2186578

PATIENT
  Age: 35 Year
  Sex: Male

DRUGS (1)
  1. BUPROPION [Suspect]
     Active Substance: BUPROPION

REACTIONS (1)
  - Pulmonary alveolar haemorrhage [Recovered/Resolved]
